FAERS Safety Report 18267511 (Version 1)
Quarter: 2020Q3

REPORT INFORMATION
  Report Type: Spontaneous
  Country: US (occurrence: US)
  Receive Date: 20200915
  Receipt Date: 20200915
  Transmission Date: 20201103
  Serious: No
  Sender: FDA-Public Use
  Company Number: US-009507513-2009USA003886

PATIENT
  Age: 18 Day
  Sex: Female
  Weight: 1.51 kg

DRUGS (15)
  1. CALCIUM GLUCONATE. [Concomitant]
     Active Substance: CALCIUM GLUCONATE
     Indication: HYPERKALAEMIA
  2. AMPICILLIN [Concomitant]
     Active Substance: AMPICILLIN
     Indication: EVIDENCE BASED TREATMENT
  3. GENTAMICIN. [Concomitant]
     Active Substance: GENTAMICIN
     Indication: EVIDENCE BASED TREATMENT
  4. NAFCILLIN SODIUM. [Concomitant]
     Active Substance: NAFCILLIN SODIUM
     Dosage: 200 MILLIGRAM/KILOGRAM
  5. RIFAMPIN. [Concomitant]
     Active Substance: RIFAMPIN
     Dosage: 10 MILLIGRAM/KILOGRAM, QD
  6. DOPAMINE [Concomitant]
     Active Substance: DOPAMINE HYDROCHLORIDE
     Indication: SUPPORTIVE CARE
  7. SODIUM BICARBONATE. [Concomitant]
     Active Substance: SODIUM BICARBONATE
     Indication: HYPERKALAEMIA
  8. DEXTROSE (+) INSULIN HUMAN [Concomitant]
     Indication: HYPERKALAEMIA
  9. NAFCILLIN SODIUM. [Concomitant]
     Active Substance: NAFCILLIN SODIUM
     Indication: STAPHYLOCOCCAL SEPSIS
     Dosage: 50 MILLIGRAM/KILOGRAM, QD
  10. HYDROCORTISONE. [Concomitant]
     Active Substance: HYDROCORTISONE
  11. INVANZ [Suspect]
     Active Substance: ERTAPENEM SODIUM
     Indication: STAPHYLOCOCCAL SEPSIS
     Dosage: 15 MILLIGRAM/KILOGRAM, Q12H
  12. FUROSEMIDE. [Concomitant]
     Active Substance: FUROSEMIDE
     Indication: HYPERKALAEMIA
  13. VANCOMYCIN [Concomitant]
     Active Substance: VANCOMYCIN
     Indication: EVIDENCE BASED TREATMENT
  14. CEFAZOLIN [Concomitant]
     Active Substance: CEFAZOLIN
     Indication: STAPHYLOCOCCAL SEPSIS
     Dosage: 50 MILLIGRAM/KILOGRAM, Q8H
  15. NAFCILLIN SODIUM. [Concomitant]
     Active Substance: NAFCILLIN SODIUM
     Dosage: 99 MILLIGRAM/KILOGRAM

REACTIONS (1)
  - Product use issue [Unknown]
